FAERS Safety Report 8997905 (Version 2)
Quarter: 2013Q1

REPORT INFORMATION
  Report Type: Report from Study
  Country: JP (occurrence: JP)
  Receive Date: 20130104
  Receipt Date: 20130207
  Transmission Date: 20140127
  Serious: Yes (Other)
  Sender: FDA-Public Use
  Company Number: JP-ROCHE-1174887

PATIENT
  Sex: Male
  Weight: 57 kg

DRUGS (10)
  1. METHOXY POLYETHYLENE GLYCOL-EPOETIN BETA [Suspect]
     Indication: NEPHROGENIC ANAEMIA
     Route: 042
     Dates: start: 20111118, end: 20120113
  2. METHOXY POLYETHYLENE GLYCOL-EPOETIN BETA [Suspect]
     Indication: NEPHROGENIC ANAEMIA
     Route: 042
     Dates: start: 20120210, end: 20120210
  3. METHOXY POLYETHYLENE GLYCOL-EPOETIN BETA [Suspect]
     Indication: NEPHROGENIC ANAEMIA
     Route: 042
     Dates: start: 20120309, end: 20120309
  4. IRBESARTAN [Concomitant]
     Indication: HYPERTENSION
     Dosage: TRADE NAME: IRBETAN
     Route: 048
  5. NIFEDIPINE [Concomitant]
     Indication: HYPERTENSION
     Dosage: TRADE NAME: NIFELANTERN
     Route: 048
  6. EPADEL [Concomitant]
     Route: 048
  7. GASPORT-D [Concomitant]
     Route: 048
  8. CALTAN [Concomitant]
     Route: 048
  9. KAYEXALATE [Concomitant]
     Route: 048
  10. DOXAZOSIN [Concomitant]
     Indication: HYPERTENSION
     Route: 048

REACTIONS (1)
  - Anaemia [Unknown]
